FAERS Safety Report 19934515 (Version 1)
Quarter: 2021Q4

REPORT INFORMATION
  Report Type: Spontaneous
  Country: CN (occurrence: CN)
  Receive Date: 20211008
  Receipt Date: 20211008
  Transmission Date: 20220303
  Serious: Yes (Hospitalization)
  Sender: FDA-Public Use
  Company Number: CN-BAXTER-2021BAX026811

PATIENT
  Age: 21 Year
  Sex: Male
  Weight: 45.7 kg

DRUGS (14)
  1. CYCLOPHOSPHAMIDE [Suspect]
     Active Substance: CYCLOPHOSPHAMIDE
     Indication: Lymphoma
     Dosage: CYCLOPHOSPHAMIDE FOR INJECTION 1000 MG + 0.9% SODIUM CHLORIDE INJECTION 500ML , DAY 2
     Route: 041
     Dates: start: 20200320, end: 20200320
  2. CYCLOPHOSPHAMIDE [Suspect]
     Active Substance: CYCLOPHOSPHAMIDE
     Dosage: DOSE REINTRODUCED, CYCLOPHOSPHAMIDE FOR INJECTION+ 0.9% SODIUM CHLORIDE INJECTION
     Route: 041
  3. SODIUM CHLORIDE [Suspect]
     Active Substance: SODIUM CHLORIDE
     Indication: Medication dilution
     Dosage: CYCLOPHOSPHAMIDE FOR INJECTION 1000 MG + 0.9% SODIUM CHLORIDE INJECTION 500ML , DAY 2
     Route: 041
     Dates: start: 20200320, end: 20200320
  4. SODIUM CHLORIDE [Suspect]
     Active Substance: SODIUM CHLORIDE
     Dosage: VINORELBINE TARTRATE INJECTION 40MG + 0.9% SODIUM CHLORIDE INJECTION 125ML ,DAY2
     Route: 041
     Dates: start: 20200320, end: 20200320
  5. SODIUM CHLORIDE [Suspect]
     Active Substance: SODIUM CHLORIDE
     Dosage: DOSE REINTRODUCED (DILUTION FOR CYCLOPHOSPHAMIDE AND VINORELBINE TARTARATE)
     Route: 041
  6. DEXTROSE [Suspect]
     Active Substance: DEXTROSE
     Indication: Medication dilution
     Dosage: RITUXIMAB INJECTION 500 MG + 5% GLUCOSE INJECTION 600ML, DAY 1
     Route: 041
     Dates: start: 20200319, end: 20200319
  7. DEXTROSE [Suspect]
     Active Substance: DEXTROSE
     Dosage: PIRARUBICIN HYDROCHLORIDE FOR INJECTION 40MG + 5% GLUCOSE INJECTION 100ML ,DAY 2
     Route: 041
     Dates: start: 20200320, end: 20200320
  8. DEXTROSE [Suspect]
     Active Substance: DEXTROSE
     Dosage: DOSE REINTRODUCED
     Route: 041
  9. PIRARUBICIN HYDROCHLORIDE [Suspect]
     Active Substance: PIRARUBICIN HYDROCHLORIDE
     Indication: Lymphoma
     Dosage: PIRARUBICIN HYDROCHLORIDE FOR INJECTION 40MG + 5% GLUCOSE INJECTION 100ML ,DAY 2
     Route: 041
     Dates: start: 20200320, end: 20200320
  10. PIRARUBICIN HYDROCHLORIDE [Suspect]
     Active Substance: PIRARUBICIN HYDROCHLORIDE
     Dosage: DOSE REINTRODUCED, PIRARUBICIN HYDROCHLORIDE FOR INJECTION+ 5% GLUCOSE INJECTION
     Route: 041
  11. VINORELBINE TARTRATE [Suspect]
     Active Substance: VINORELBINE TARTRATE
     Indication: Lymphoma
     Dosage: VINORELBINE TARTRATE INJECTION 40MG + 0.9% SODIUM CHLORIDE INJECTION 125ML ,DAY2
     Route: 041
     Dates: start: 20200320, end: 20200320
  12. VINORELBINE TARTRATE [Suspect]
     Active Substance: VINORELBINE TARTRATE
     Dosage: DOSE REINTRODUCED, VINORELBINE TARTRATE INJECTION+ 0.9% SODIUM CHLORIDE INJECTION
     Route: 041
  13. RITUXIMAB [Suspect]
     Active Substance: RITUXIMAB
     Indication: Lymphoma
     Dosage: RITUXIMAB INJECTION 500 MG + 5% GLUCOSE INJECTION 600ML, DAY 1
     Route: 041
     Dates: start: 20200319, end: 20200319
  14. RITUXIMAB [Suspect]
     Active Substance: RITUXIMAB
     Dosage: DOSE REINTRODUCED, RITUXIMAB INJECTION+ 5% GLUCOSE INJECTION
     Route: 041

REACTIONS (1)
  - Myelosuppression [Recovered/Resolved]

NARRATIVE: CASE EVENT DATE: 20200328
